FAERS Safety Report 4286992-2 (Version None)
Quarter: 2004Q1

REPORT INFORMATION
  Report Type: 
  Country: None (occurrence: None)
  Receive Date: 20040204
  Receipt Date: 20040126
  Transmission Date: 20041129
  Serious: Yes (Death)
  Sender: FDA-Public Use
  Company Number: 2004UW00633

PATIENT
  Age: 79 Year
  Sex: Female

DRUGS (13)
  1. SEROQUEL [Suspect]
     Indication: PARKINSON'S DISEASE
     Dates: start: 20030806, end: 20031017
  2. FOSAMAX [Concomitant]
  3. LEVOTHYROXINE SODIUM [Concomitant]
  4. SINEMET [Concomitant]
  5. DIURETIC [Concomitant]
  6. POLYSPORIN DROPS [Concomitant]
  7. CALCIUM CARBONATE [Concomitant]
  8. CALCIUM [Concomitant]
  9. HALOPERIDOL [Concomitant]
  10. LACTULOSE [Concomitant]
  11. COLACE [Concomitant]
  12. GLYCERIN SUPPOSITORIES [Concomitant]
  13. ACETAMINOPHEN [Concomitant]

REACTIONS (5)
  - ASTHENIA [None]
  - DYSPEPSIA [None]
  - EXTRASYSTOLES [None]
  - SOMNOLENCE [None]
  - WEIGHT DECREASED [None]
